FAERS Safety Report 21091742 (Version 1)
Quarter: 2022Q3

REPORT INFORMATION
  Report Type: Spontaneous
  Country: US (occurrence: US)
  Receive Date: 20220717
  Receipt Date: 20220717
  Transmission Date: 20221026
  Serious: No
  Sender: FDA-Public Use
  Company Number: US-GALDERMA-US2022008458

PATIENT

DRUGS (6)
  1. PROACTIV MD ADAPALENE ACNE TREATMENT [Suspect]
     Active Substance: ADAPALENE
     Indication: Acne
     Dosage: 1 DOSAGE FORM, QD
     Route: 061
     Dates: start: 202203, end: 20220615
  2. PROACTIV MD DAILY OIL CONTROL SPF 30 [Suspect]
     Active Substance: AVOBENZONE\OCTISALATE\OCTOCRYLENE
     Indication: Acne
     Dosage: 1 DOSAGE FORM (2 OR MORE TIMES A DAY)
     Route: 061
     Dates: start: 202203, end: 20220615
  3. Proactiv MD Ultra Hydrating Moisturizer [Concomitant]
     Indication: Acne
     Dosage: UNK
     Route: 061
     Dates: start: 202203, end: 20220615
  4. Proactiv MD Ultra Gentle Cleanser [Concomitant]
     Indication: Acne
     Dosage: UNK
     Route: 061
     Dates: start: 202203, end: 20220615
  5. Proactiv Post Acne Scar Gel [Concomitant]
     Indication: Acne
     Dosage: UNK
     Route: 061
     Dates: start: 202203, end: 20220615
  6. Proactiv Amazonian Clay Mask [Concomitant]
     Indication: Acne
     Dosage: UNK
     Route: 061
     Dates: start: 202203, end: 20220615

REACTIONS (3)
  - Skin burning sensation [Recovered/Resolved]
  - Erythema [Recovered/Resolved]
  - Acne [Recovered/Resolved]

NARRATIVE: CASE EVENT DATE: 20220101
